FAERS Safety Report 12295682 (Version 2)
Quarter: 2016Q2

REPORT INFORMATION
  Report Type: Spontaneous
  Country: DE (occurrence: DE)
  Receive Date: 20160422
  Receipt Date: 20160517
  Transmission Date: 20160815
  Serious: Yes (Hospitalization)
  Sender: FDA-Public Use
  Company Number: DE-ASTRAZENECA-2016SE41264

PATIENT
  Age: 23624 Day
  Sex: Male
  Weight: 84 kg

DRUGS (1)
  1. XIGDUO XR [Suspect]
     Active Substance: DAPAGLIFLOZIN PROPANEDIOL\METFORMIN HYDROCHLORIDE
     Indication: TYPE 2 DIABETES MELLITUS
     Dosage: 5/1000 MG, TWO TIMES A DAY
     Route: 048
     Dates: start: 201602, end: 20160322

REACTIONS (7)
  - Prerenal failure [Recovered/Resolved]
  - Ketoacidosis [Recovered/Resolved]
  - Dehydration [Recovered/Resolved]
  - Abdominal pain [Unknown]
  - Haematemesis [Unknown]
  - Pneumonia [Recovered/Resolved]
  - Tachyarrhythmia [Recovered/Resolved]

NARRATIVE: CASE EVENT DATE: 20160319
